FAERS Safety Report 25966541 (Version 1)
Quarter: 2025Q4

REPORT INFORMATION
  Report Type: Spontaneous
  Country: US (occurrence: None)
  Receive Date: 20251028
  Receipt Date: 20251028
  Transmission Date: 20260118
  Serious: No
  Sender: UCB
  Company Number: US-UCBSA-2025032793

PATIENT
  Weight: 104.32 kg

DRUGS (3)
  1. BIMZELX [Suspect]
     Active Substance: BIMEKIZUMAB-BKZX
     Indication: Psoriasis
     Dosage: 320 MILLIGRAM, EV 4 WEEKS
  2. BAYER [Concomitant]
     Active Substance: ASPIRIN
     Indication: Product used for unknown indication
  3. GOODYS [Concomitant]
     Active Substance: ACETAMINOPHEN\ASPIRIN\CAFFEINE
     Indication: Product used for unknown indication

REACTIONS (2)
  - Injection site swelling [Unknown]
  - Injection site nodule [Unknown]
